FAERS Safety Report 10869334 (Version 1)
Quarter: 2015Q1

REPORT INFORMATION
  Report Type: Spontaneous
  Country: FR (occurrence: FR)
  Receive Date: 20150226
  Receipt Date: 20150226
  Transmission Date: 20150721
  Serious: Yes (Hospitalization)
  Sender: FDA-Public Use
  Company Number: FR-ROCHE-1544294

PATIENT
  Age: 62 Year
  Sex: Female

DRUGS (12)
  1. CELLCEPT [Suspect]
     Active Substance: MYCOPHENOLATE MOFETIL\MYCOPHENOLATE MOFETIL HYDROCHLORIDE
     Route: 048
  2. ROVALCYTE [Suspect]
     Active Substance: VALGANCICLOVIR HYDROCHLORIDE
     Indication: LIVER TRANSPLANT
     Route: 048
     Dates: start: 20140308, end: 20140728
  3. TAVANIC [Suspect]
     Active Substance: LEVOFLOXACIN
     Indication: LIVER TRANSPLANT
     Route: 048
     Dates: start: 20140719, end: 20140729
  4. PROGRAF [Concomitant]
     Active Substance: TACROLIMUS\TACROLIMUS ANHYDROUS
     Route: 048
     Dates: start: 20140308
  5. BACTRIM [Suspect]
     Active Substance: SULFAMETHOXAZOLE\TRIMETHOPRIM
     Indication: LIVER TRANSPLANT
     Route: 048
     Dates: start: 20140308, end: 20140728
  6. ADVAGRAF [Concomitant]
     Active Substance: TACROLIMUS
     Route: 065
  7. BRICANYL [Concomitant]
     Active Substance: TERBUTALINE SULFATE
     Route: 055
  8. CELLCEPT [Suspect]
     Active Substance: MYCOPHENOLATE MOFETIL\MYCOPHENOLATE MOFETIL HYDROCHLORIDE
     Indication: LIVER TRANSPLANT
     Route: 048
     Dates: start: 20140308, end: 20140728
  9. KARDEGIC [Concomitant]
     Active Substance: ASPIRIN LYSINE
     Route: 048
     Dates: start: 20140308
  10. SYMBICORT [Concomitant]
     Active Substance: BUDESONIDE\FORMOTEROL FUMARATE DIHYDRATE
     Route: 055
     Dates: start: 20140719
  11. EUPANTOL [Suspect]
     Active Substance: PANTOPRAZOLE SODIUM
     Indication: LIVER TRANSPLANT
     Route: 048
     Dates: start: 20140308, end: 20140728
  12. MEDROL [Concomitant]
     Active Substance: METHYLPREDNISOLONE
     Route: 048
     Dates: start: 20140308

REACTIONS (1)
  - Agranulocytosis [Recovered/Resolved]

NARRATIVE: CASE EVENT DATE: 20140727
